FAERS Safety Report 15641148 (Version 2)
Quarter: 2018Q4

REPORT INFORMATION
  Report Type: Report from Study
  Country: US (occurrence: US)
  Receive Date: 20181120
  Receipt Date: 20181214
  Transmission Date: 20190205
  Serious: Yes (Hospitalization, Other)
  Sender: FDA-Public Use
  Company Number: US-BRISTOL-MYERS SQUIBB COMPANY-BMS-2018-107360

PATIENT
  Age: 70 Year
  Sex: Female

DRUGS (2)
  1. RELATLIMAB [Suspect]
     Active Substance: RELATLIMAB
     Indication: RENAL CELL CARCINOMA
     Dosage: 80 MG, UNK
     Route: 042
     Dates: start: 20180501
  2. NIVOLUMAB [Suspect]
     Active Substance: NIVOLUMAB
     Indication: RENAL CELL CARCINOMA
     Dosage: 240 MG, UNK
     Route: 042
     Dates: start: 20180501

REACTIONS (1)
  - Adrenal insufficiency [Recovered/Resolved with Sequelae]

NARRATIVE: CASE EVENT DATE: 20181113
